FAERS Safety Report 12181180 (Version 2)
Quarter: 2016Q1

REPORT INFORMATION
  Report Type: Spontaneous
  Country: SE (occurrence: SE)
  Receive Date: 20160315
  Receipt Date: 20160317
  Transmission Date: 20160526
  Serious: Yes (Other)
  Sender: FDA-Public Use
  Company Number: SE-JNJFOC-20160312219

PATIENT
  Age: 24 Year
  Sex: Male
  Weight: 109 kg

DRUGS (2)
  1. CONCERTA [Suspect]
     Active Substance: METHYLPHENIDATE HYDROCHLORIDE
     Indication: AGGRESSION
     Dosage: AT AN UNKNOWN DAILY DOSE OF 36 AND/OR 54 MG
     Route: 048
     Dates: start: 2012
  2. CONCERTA [Suspect]
     Active Substance: METHYLPHENIDATE HYDROCHLORIDE
     Indication: ATTENTION DEFICIT/HYPERACTIVITY DISORDER
     Dosage: AT AN UNKNOWN DAILY DOSE OF 36 AND/OR 54 MG
     Route: 048
     Dates: start: 2012

REACTIONS (2)
  - Abnormal behaviour [Not Recovered/Not Resolved]
  - Euphoric mood [Not Recovered/Not Resolved]

NARRATIVE: CASE EVENT DATE: 2016
